FAERS Safety Report 6721816-2 (Version None)
Quarter: 2010Q2

REPORT INFORMATION
  Report Type: 
  Country: None (occurrence: None)
  Receive Date: 20100512
  Receipt Date: 20100503
  Transmission Date: 20101027
  Serious: Yes (Congenital Anomaly)
  Sender: FDA-Public Use
  Company Number: FR-ROCHE-702197

PATIENT
  Sex: Male
  Weight: 2.8 kg

DRUGS (2)
  1. NAPROSYN [Suspect]
     Indication: DRUG USE FOR UNKNOWN INDICATION
     Dates: start: 20090815, end: 20090815
  2. IBUPROFENE [Suspect]
     Indication: DRUG USE FOR UNKNOWN INDICATION
     Dates: start: 20090701, end: 20090701

REACTIONS (4)
  - CONVULSION NEONATAL [None]
  - MICROCEPHALY [None]
  - OXYGEN SATURATION DECREASED [None]
  - RESPIRATORY DISTRESS [None]
